FAERS Safety Report 18861619 (Version 2)
Quarter: 2021Q1

REPORT INFORMATION
  Report Type: Spontaneous
  Country: ES (occurrence: ES)
  Receive Date: 20210209
  Receipt Date: 20210310
  Transmission Date: 20210420
  Serious: Yes (Other)
  Sender: FDA-Public Use
  Company Number: ES-AUROBINDO-AUR-APL-2021-001339

PATIENT
  Age: 78 Year
  Sex: Female

DRUGS (15)
  1. VALSARTAN 160MG [Interacting]
     Active Substance: VALSARTAN
     Dosage: 160 MILLIGRAM, ONCE A DAY
     Route: 065
  2. ACENOCOUMAROL [Interacting]
     Active Substance: ACENOCOUMAROL
     Indication: ATRIAL FIBRILLATION
     Dosage: 4 MILLIGRAM
     Route: 065
  3. AMOXICILLIN. [Interacting]
     Active Substance: AMOXICILLIN
     Indication: HELICOBACTER INFECTION
     Dosage: 1 DOSAGE FORM, TWO TIMES A DAY (1?0?1)
     Route: 065
  4. AMOXICILLIN. [Interacting]
     Active Substance: AMOXICILLIN
     Dosage: 1 GRAM, TWO TIMES A DAY
     Route: 065
  5. AMLODIPINE [Suspect]
     Active Substance: AMLODIPINE BESYLATE
     Indication: HYPERTENSION
     Dosage: 1 DOSAGE FORM, ONCE A DAY (0?0?1)
     Route: 065
  6. CLARITHROMYCIN 500MG [Interacting]
     Active Substance: CLARITHROMYCIN
     Indication: HELICOBACTER INFECTION
     Dosage: 1 DOSAGE FORM, TWO TIMES A DAY (1?0?1)
     Route: 065
  7. CARVEDILOL  6.25 MG [Interacting]
     Active Substance: CARVEDILOL
     Indication: CARDIAC DISORDER
     Dosage: 1 DOSAGE FORM, TWO TIMES A DAY (1?0?1)
     Route: 065
  8. OMEPRAZOLE 20MG [Interacting]
     Active Substance: OMEPRAZOLE
     Indication: HELICOBACTER INFECTION
     Dosage: 1 DOSAGE FORM, TWO TIMES A DAY (1?0?1)
     Route: 065
  9. VALSARTAN 160MG [Interacting]
     Active Substance: VALSARTAN
     Indication: HYPERTENSION
     Dosage: 1 DOSAGE FORM, ONCE A DAY ((1?0?0)
     Route: 065
  10. CARVEDILOL  6.25 MG [Interacting]
     Active Substance: CARVEDILOL
     Indication: ATRIAL FIBRILLATION
     Dosage: 6.25 MILLIGRAM, TWO TIMES A DAY
     Route: 065
  11. METRONIDAZOLE 250MG [Interacting]
     Active Substance: METRONIDAZOLE
     Dosage: 500 MILLIGRAM, TWO TIMES A DAY
     Route: 065
  12. AMLODIPINE [Interacting]
     Active Substance: AMLODIPINE BESYLATE
     Dosage: 5 MILLIGRAM, ONCE A DAY
     Route: 065
  13. METRONIDAZOLE 250MG [Interacting]
     Active Substance: METRONIDAZOLE
     Indication: HELICOBACTER INFECTION
     Dosage: 2 DOSAGE FORM, TWO TIMES A DAY (2?0?2)
     Route: 065
  14. CLARITHROMYCIN 500MG [Interacting]
     Active Substance: CLARITHROMYCIN
     Dosage: 500 MILLIGRAM, TWO TIMES A DAY
     Route: 065
  15. OMEPRAZOLE 20MG [Interacting]
     Active Substance: OMEPRAZOLE
     Dosage: 20 MILLIGRAM, TWO TIMES A DAY
     Route: 065

REACTIONS (5)
  - International normalised ratio increased [Unknown]
  - Potentiating drug interaction [Unknown]
  - International normalised ratio abnormal [Unknown]
  - Drug interaction [Unknown]
  - Tongue discolouration [Unknown]
